FAERS Safety Report 19622700 (Version 2)
Quarter: 2021Q3

REPORT INFORMATION
  Report Type: Report from Study
  Country: CN (occurrence: CN)
  Receive Date: 20210728
  Receipt Date: 20210907
  Transmission Date: 20211014
  Serious: Yes (Hospitalization)
  Sender: FDA-Public Use
  Company Number: CN-ELI_LILLY_AND_COMPANY-CN202107007646

PATIENT
  Age: 44 Year
  Sex: Female
  Weight: 56 kg

DRUGS (2)
  1. VERZENIOS [Suspect]
     Active Substance: ABEMACICLIB
     Dosage: 150 MG, BID
     Route: 048
     Dates: end: 20210627
  2. VERZENIOS [Suspect]
     Active Substance: ABEMACICLIB
     Indication: BREAST CANCER
     Dosage: 150 MG, BID
     Route: 048
     Dates: start: 20210427

REACTIONS (7)
  - Hypophagia [Unknown]
  - Ascites [Not Recovered/Not Resolved]
  - Fluid retention [Unknown]
  - Weight decreased [Unknown]
  - Pleural effusion [Not Recovered/Not Resolved]
  - Drug ineffective [Unknown]
  - Iron deficiency anaemia [Not Recovered/Not Resolved]

NARRATIVE: CASE EVENT DATE: 202106
